FAERS Safety Report 8224464-0 (Version None)
Quarter: 2012Q1

REPORT INFORMATION
  Report Type: 
  Country: None (occurrence: None)
  Receive Date: 20120307
  Receipt Date: 20090825
  Transmission Date: 20120608
  Serious: No
  Sender: FDA-Public Use
  Company Number: PHEH2009US08117

PATIENT
  Age: 80 Year
  Sex: Male
  Weight: 86.6 kg

DRUGS (9)
  1. LOTREL [Concomitant]
  2. AFINITOR [Suspect]
     Indication: RENAL CELL CARCINOMA
     Dosage: 10 MG, QD  : 10 MG QOD, ORAL
     Route: 048
     Dates: start: 20090501, end: 20090531
  3. AFINITOR [Suspect]
     Indication: RENAL CELL CARCINOMA
     Dosage: 10 MG, QD  : 10 MG QOD, ORAL
     Route: 048
     Dates: start: 20090601, end: 20090616
  4. FLOMAX [Concomitant]
  5. TOPROL-XL [Concomitant]
  6. COUMADIN [Concomitant]
  7. CALCIUM CARBONATE [Concomitant]
  8. MULTIVITAMINS (ASCORBIC ACID, ERGOCALCIFEROL, FOLIC ACID, NICOTINAMIDE [Concomitant]
  9. ZOCOR [Concomitant]

REACTIONS (5)
  - THROMBOCYTOPENIA [None]
  - CONDITION AGGRAVATED [None]
  - ORAL PAIN [None]
  - FATIGUE [None]
  - STOMATITIS [None]
